FAERS Safety Report 25479207 (Version 1)
Quarter: 2025Q2

REPORT INFORMATION
  Report Type: Spontaneous
  Country: US (occurrence: None)
  Receive Date: 20250625
  Receipt Date: 20250625
  Transmission Date: 20250716
  Serious: No
  Sender: FDA-CTU
  Company Number: None

PATIENT
  Age: 75 Year
  Sex: Female
  Weight: 53.55 kg

DRUGS (9)
  1. JOURNAVX [Suspect]
     Active Substance: SUZETRIGINE
     Indication: Procedural pain
     Dates: start: 20250611
  2. GABAPENTIN [Concomitant]
     Active Substance: GABAPENTIN
  3. SYNTHROID [Concomitant]
     Active Substance: LEVOTHYROXINE SODIUM
  4. ESTRADIOL [Concomitant]
     Active Substance: ESTRADIOL
  5. CYMBALTA [Concomitant]
     Active Substance: DULOXETINE HYDROCHLORIDE
  6. MINERALS\VITAMINS [Concomitant]
     Active Substance: MINERALS\VITAMINS
  7. MAGNESIUM [Concomitant]
     Active Substance: MAGNESIUM
  8. BIOTIN [Concomitant]
     Active Substance: BIOTIN
  9. MIRALAX [Concomitant]
     Active Substance: POLYETHYLENE GLYCOL 3350

REACTIONS (2)
  - Therapeutic product effect incomplete [None]
  - Dizziness [None]

NARRATIVE: CASE EVENT DATE: 20250618
